FAERS Safety Report 20576285 (Version 1)
Quarter: 2022Q1

REPORT INFORMATION
  Report Type: Spontaneous
  Country: US (occurrence: US)
  Receive Date: 20220310
  Receipt Date: 20220310
  Transmission Date: 20220423
  Serious: Yes (Other)
  Sender: FDA-Public Use
  Company Number: US-STRIDES ARCOLAB LIMITED-2022SP001641

PATIENT
  Age: 31 Year
  Sex: Female

DRUGS (5)
  1. PREDNISOLONE [Suspect]
     Active Substance: PREDNISOLONE
     Indication: Morphoea
     Dosage: 60 MILLIGRAM PER DAY
     Route: 048
  2. PREDNISOLONE [Suspect]
     Active Substance: PREDNISOLONE
     Dosage: 10 MILLIGRAM (WEEKLY DOSE REDUCTION BY 10MG)
     Route: 048
  3. METHOTREXATE [Suspect]
     Active Substance: METHOTREXATE
     Indication: Morphoea
     Dosage: 8 TABLETS, ONCE A WEEK
     Route: 065
  4. CALCIPOTRIENE [Suspect]
     Active Substance: CALCIPOTRIENE
     Indication: Morphoea
     Dosage: UNK UNK, BID (OINTMENT APPLIED TWICE DAILY)
     Route: 061
  5. CLOBETASOL [Suspect]
     Active Substance: CLOBETASOL
     Indication: Morphoea
     Dosage: UNK UNK, BID (OINTMENT APPLIED TWICE DAILY)
     Route: 061

REACTIONS (3)
  - Drug ineffective [Unknown]
  - Liver function test increased [Unknown]
  - Off label use [Unknown]
